FAERS Safety Report 18399927 (Version 2)
Quarter: 2020Q4

REPORT INFORMATION
  Report Type: Spontaneous
  Country: US (occurrence: US)
  Receive Date: 20201019
  Receipt Date: 20201027
  Transmission Date: 20210114
  Serious: Yes (Other)
  Sender: FDA-Public Use
  Company Number: US-PFIZER INC-2020402262

PATIENT
  Age: 76 Year
  Sex: Female

DRUGS (3)
  1. SILDENAFIL CITRATE. [Suspect]
     Active Substance: SILDENAFIL CITRATE
     Dosage: 10 MG, 3X/DAY
     Route: 048
     Dates: end: 20201002
  2. ORENITRAM [Suspect]
     Active Substance: TREPROSTINIL
     Dosage: 0.125 MG, 3X/DAY
     Route: 048
  3. ORENITRAM [Suspect]
     Active Substance: TREPROSTINIL
     Indication: PULMONARY ARTERIAL HYPERTENSION
     Dosage: 0.125 MG, 2X/DAY (UNTIL 12OCT2020, THEN SHE WOULD BEGIN TO TITRATE UP EVERY 4 DAYS AS WRITTEN)
     Route: 048
     Dates: start: 20200928

REACTIONS (11)
  - Off label use [Recovered/Resolved]
  - Pain in jaw [Recovered/Resolved]
  - Product use issue [Recovered/Resolved]
  - Swelling face [Recovered/Resolved]
  - Nervousness [Recovered/Resolved]
  - Peripheral swelling [Recovering/Resolving]
  - Headache [Recovered/Resolved]
  - Hypersensitivity [Recovering/Resolving]
  - Pain in extremity [Recovered/Resolved]
  - Arthralgia [Recovered/Resolved]
  - Dizziness [Recovered/Resolved]

NARRATIVE: CASE EVENT DATE: 2020
